FAERS Safety Report 4833827-2 (Version None)
Quarter: 2005Q4

REPORT INFORMATION
  Report Type: 
  Country: None (occurrence: None)
  Receive Date: 20051114
  Receipt Date: 20050930
  Transmission Date: 20060501
  Serious: Yes (Death)
  Sender: FDA-Public Use
  Company Number: 2005AL003974

PATIENT
  Age: 24 Year
  Sex: 0

DRUGS (2)
  1. PROPOXYPHENE HYDROCHLORIDE W/ACETAMINOPHEN TAB [Suspect]
     Dosage: PO
     Route: 048
  2. OXYCODONE [Suspect]
     Dosage: PO
     Route: 048

REACTIONS (3)
  - CARDIAC ARREST [None]
  - POLYSUBSTANCE ABUSE [None]
  - RESPIRATORY ARREST [None]
